FAERS Safety Report 13615414 (Version 3)
Quarter: 2017Q3

REPORT INFORMATION
  Report Type: Spontaneous
  Country: FR (occurrence: FR)
  Receive Date: 20170606
  Receipt Date: 20170720
  Transmission Date: 20171127
  Serious: Yes (Hospitalization, Other)
  Sender: FDA-Public Use
  Company Number: FR-009507513-1706FRA000142

PATIENT
  Age: 12 Year
  Sex: Female

DRUGS (3)
  1. DEXAMETHASONE. [Concomitant]
     Active Substance: DEXAMETHASONE
     Indication: INDUCTION OF ANAESTHESIA
     Dosage: 5 MG, UNK
     Dates: start: 20170116, end: 20170116
  2. ESMERON [Suspect]
     Active Substance: ROCURONIUM BROMIDE
     Indication: INDUCTION OF ANAESTHESIA
     Dosage: 40 MG, ONCE
     Route: 042
     Dates: start: 20170116, end: 20170116
  3. DIPRIVAN [Concomitant]
     Active Substance: PROPOFOL
     Indication: INDUCTION OF ANAESTHESIA
     Dosage: 200+50 MG
     Dates: start: 20170116, end: 20170116

REACTIONS (2)
  - Anaphylactic shock [Recovered/Resolved]
  - Drug hypersensitivity [Unknown]

NARRATIVE: CASE EVENT DATE: 20170116
